FAERS Safety Report 21484792 (Version 2)
Quarter: 2022Q4

REPORT INFORMATION
  Report Type: Spontaneous
  Country: CA (occurrence: CA)
  Receive Date: 20221020
  Receipt Date: 20221122
  Transmission Date: 20230113
  Serious: Yes (Other)
  Sender: FDA-Public Use
  Company Number: CA-PFIZER INC-202201236814

PATIENT
  Age: 19 Year
  Sex: Female

DRUGS (3)
  1. ADALIMUMAB [Suspect]
     Active Substance: ADALIMUMAB
     Dosage: UNK
  2. MESALAMINE [Concomitant]
     Active Substance: MESALAMINE
     Dosage: 4.8 G, DAILY
  3. MESALAMINE [Concomitant]
     Active Substance: MESALAMINE
     Dosage: 1 G, DAILY (NIGHTLY)
     Route: 054

REACTIONS (3)
  - Haematochezia [Unknown]
  - Abdominal pain [Unknown]
  - Arthralgia [Unknown]
